FAERS Safety Report 18017104 (Version 1)
Quarter: 2020Q3

REPORT INFORMATION
  Report Type: Report from Study
  Country: None (occurrence: US)
  Receive Date: 20200714
  Receipt Date: 20200714
  Transmission Date: 20201103
  Serious: Yes (Hospitalization)
  Sender: FDA-Public Use
  Company Number: US-ABBVIE-20K-163-3437797-00

PATIENT
  Sex: Male

DRUGS (1)
  1. HUMIRA [Suspect]
     Active Substance: ADALIMUMAB
     Indication: HIDRADENITIS
     Route: 058

REACTIONS (8)
  - Gait disturbance [Unknown]
  - Gastrointestinal disorder [Unknown]
  - Gastric perforation [Unknown]
  - Anxiety [Unknown]
  - Illness [Unknown]
  - Blood test abnormal [Unknown]
  - Frustration tolerance decreased [Unknown]
  - Abdominal wall wound [Unknown]
